FAERS Safety Report 8366503-2 (Version None)
Quarter: 2012Q2

REPORT INFORMATION
  Report Type: 
  Country: None (occurrence: None)
  Receive Date: 20120517
  Receipt Date: 20120510
  Transmission Date: 20120825
  Serious: Yes (Other)
  Sender: FDA-Public Use
  Company Number: US-UCBSA-057249

PATIENT
  Sex: Female

DRUGS (1)
  1. CIMZIA [Suspect]
     Indication: CROHN'S DISEASE

REACTIONS (3)
  - SWOLLEN TONGUE [None]
  - PHARYNGEAL OEDEMA [None]
  - LYMPHADENOPATHY [None]
